FAERS Safety Report 8235690-9 (Version None)
Quarter: 2012Q1

REPORT INFORMATION
  Report Type: 
  Country: None (occurrence: None)
  Receive Date: 20120326
  Receipt Date: 20120320
  Transmission Date: 20120608
  Serious: Yes (Other)
  Sender: FDA-Public Use
  Company Number: US-PFIZER INC-2012072367

PATIENT
  Sex: Female
  Weight: 79.819 kg

DRUGS (6)
  1. PRAVASTATIN [Concomitant]
     Dosage: 20 MG
  2. LYRICA [Suspect]
     Dosage: 150 MG, 2X/DAY
     Route: 048
     Dates: start: 20110101, end: 20120313
  3. LYRICA [Suspect]
     Dosage: 150 MG, 1X/DAY
     Route: 048
     Dates: start: 20120314, end: 20120318
  4. NORVASC [Concomitant]
     Indication: HYPERTENSION
     Dosage: 10 MG
  5. VITAMIN B-12 [Concomitant]
     Dosage: UNK
  6. TOPROL-XL [Concomitant]
     Indication: HYPERTENSION
     Dosage: UNK

REACTIONS (6)
  - DRY MOUTH [None]
  - THIRST [None]
  - HEART RATE DECREASED [None]
  - PALPITATIONS [None]
  - HYPERHIDROSIS [None]
  - COLD SWEAT [None]
